FAERS Safety Report 24838491 (Version 1)
Quarter: 2025Q1

REPORT INFORMATION
  Report Type: Spontaneous
  Country: CN (occurrence: CN)
  Receive Date: 20250113
  Receipt Date: 20250113
  Transmission Date: 20250409
  Serious: Yes (Hospitalization, Other)
  Sender: MERCK
  Company Number: CN-009507513-2501CHN002539

PATIENT
  Age: 35 Year
  Sex: Male

DRUGS (3)
  1. PEMBROLIZUMAB [Suspect]
     Active Substance: PEMBROLIZUMAB
     Indication: Squamous cell carcinoma of the tongue
     Route: 041
     Dates: start: 20240920, end: 20240920
  2. PACLITAXEL [Suspect]
     Active Substance: PACLITAXEL
     Indication: Squamous cell carcinoma of the tongue
     Route: 041
     Dates: start: 20240920, end: 20240920
  3. NEDAPLATIN [Suspect]
     Active Substance: NEDAPLATIN
     Indication: Squamous cell carcinoma
     Route: 041
     Dates: start: 20240920, end: 20240920

REACTIONS (3)
  - Hepatic function abnormal [Recovering/Resolving]
  - Squamous cell carcinoma of the tongue [Unknown]
  - Product use issue [Unknown]

NARRATIVE: CASE EVENT DATE: 20240101
